FAERS Safety Report 8181831-1 (Version None)
Quarter: 2012Q1

REPORT INFORMATION
  Report Type: 
  Country: None (occurrence: None)
  Receive Date: 20120302
  Receipt Date: 20120220
  Transmission Date: 20120608
  Serious: Yes (Hospitalization)
  Sender: FDA-Public Use
  Company Number: GB-WATSON-2012-03139

PATIENT
  Age: 56 Year
  Sex: Male

DRUGS (2)
  1. TRAMADOL HCL [Suspect]
     Indication: INTENTIONAL OVERDOSE
     Dosage: 60 TABS OF 50 MG
     Route: 048
  2. CO-DYDRAMOL [Suspect]
     Indication: INTENTIONAL OVERDOSE
     Dosage: 20 TABS OF 10/500 MG

REACTIONS (2)
  - INAPPROPRIATE ANTIDIURETIC HORMONE SECRETION [None]
  - INTENTIONAL OVERDOSE [None]
